FAERS Safety Report 5224957-4 (Version None)
Quarter: 2007Q1

REPORT INFORMATION
  Report Type: 
  Country: None (occurrence: None)
  Receive Date: 20070131
  Receipt Date: 20050630
  Transmission Date: 20070707
  Serious: No
  Sender: FDA-Public Use
  Company Number: FR-AVENTIS-200618433GDDC

PATIENT
  Age: 30 Year
  Sex: Male

DRUGS (3)
  1. LEFLUNOMIDE [Suspect]
     Route: 048
     Dates: start: 20031001
  2. LEFLUNOMIDE [Suspect]
     Route: 048
     Dates: start: 20031001, end: 20031201
  3. NSAID'S [Concomitant]

REACTIONS (2)
  - DRUG EXPOSURE DURING PREGNANCY [None]
  - PREGNANCY OF PARTNER [None]
